FAERS Safety Report 17849965 (Version 1)
Quarter: 2020Q2

REPORT INFORMATION
  Report Type: Spontaneous
  Country: GB (occurrence: GB)
  Receive Date: 20200602
  Receipt Date: 20200602
  Transmission Date: 20200714
  Serious: Yes (Disabling, Other)
  Sender: FDA-Public Use
  Company Number: GB-TEVA-2020-GB-1242458

PATIENT
  Age: 85 Year
  Sex: Male
  Weight: 90.71 kg

DRUGS (3)
  1. SIMVASTATIN. [Suspect]
     Active Substance: SIMVASTATIN
     Dosage: 80 MG
     Route: 048
     Dates: start: 20050404
  2. LERCANIDIPINE HYDROCHLORIDE [Concomitant]
     Active Substance: LERCANIDIPINE HYDROCHLORIDE
     Dosage: 10 MG
  3. TIMOLOL. [Concomitant]
     Active Substance: TIMOLOL
     Dosage: 0.25 PERCENT

REACTIONS (1)
  - Hypoaesthesia [Not Recovered/Not Resolved]
